FAERS Safety Report 5255355-5 (Version None)
Quarter: 2007Q1

REPORT INFORMATION
  Report Type: 
  Country: None (occurrence: None)
  Receive Date: 20070305
  Receipt Date: 20070228
  Transmission Date: 20070707
  Serious: Yes (Death, Other)
  Sender: FDA-Public Use
  Company Number: PHBS2007JP03027

PATIENT
  Age: 57 Year
  Sex: Male

DRUGS (4)
  1. INTERFERON ALFA [Suspect]
     Indication: METASTASES TO LUNG
  2. CIMETIDINE HCL [Suspect]
  3. DICLOFENAC SODIUM [Suspect]
  4. INTERLEUKINS [Suspect]

REACTIONS (2)
  - MALIGNANT NEOPLASM PROGRESSION [None]
  - PLATELET COUNT DECREASED [None]
